FAERS Safety Report 10046957 (Version 1)
Quarter: 2014Q1

REPORT INFORMATION
  Report Type: Spontaneous
  Country: US (occurrence: None)
  Receive Date: 20140328
  Receipt Date: 20140328
  Transmission Date: 20141002
  Serious: Yes (Other)
  Sender: FDA-Public Use
  Company Number: None

PATIENT
  Age: 54 Year
  Sex: Female

DRUGS (2)
  1. BALSALAZIDE [Suspect]
     Indication: CROHN^S DISEASE
     Dosage: 3 CAPS
     Route: 048
     Dates: start: 201312
  2. AZATHIOPRINE [Concomitant]

REACTIONS (3)
  - Crohn^s disease [None]
  - Condition aggravated [None]
  - Product substitution issue [None]
